FAERS Safety Report 4657923-8 (Version None)
Quarter: 2005Q2

REPORT INFORMATION
  Report Type: 
  Country: None (occurrence: None)
  Receive Date: 20050504
  Receipt Date: 20040429
  Transmission Date: 20051028
  Serious: Yes (Hospitalization)
  Sender: FDA-Public Use
  Company Number: 001349

PATIENT
  Age: 47 Year
  Sex: Female
  Weight: 72.1 kg

DRUGS (4)
  1. CENESTIN [Suspect]
     Indication: ARTIFICIAL MENOPAUSE
     Dosage: 0.90 MG, QD, ORAL
     Route: 048
     Dates: start: 19990101, end: 20040401
  2. CENESTIN [Suspect]
     Indication: ARTIFICIAL MENOPAUSE
     Dosage: 0.90 MG, QD, ORAL
     Route: 048
     Dates: start: 20040401
  3. . [Concomitant]
  4. LEVOXYL [Concomitant]

REACTIONS (1)
  - MIGRAINE [None]
